FAERS Safety Report 10183012 (Version 1)
Quarter: 2014Q2

REPORT INFORMATION
  Report Type: Spontaneous
  Country: US (occurrence: US)
  Receive Date: 20140520
  Receipt Date: 20140520
  Transmission Date: 20141212
  Serious: No
  Sender: FDA-Public Use
  Company Number: US-PFIZER INC-2014136246

PATIENT
  Sex: Male

DRUGS (3)
  1. ADVIL [Suspect]
     Dosage: SIX PILLS, DAILY
  2. ALEVE [Suspect]
     Dosage: TWO PILLS, DAILY
  3. ALEVE [Suspect]
     Dosage: FOUR PILLS, DAILY

REACTIONS (1)
  - Drug ineffective [Unknown]
